FAERS Safety Report 6457307-6 (Version None)
Quarter: 2009Q4

REPORT INFORMATION
  Report Type: 
  Country: None (occurrence: None)
  Receive Date: 20091125
  Receipt Date: 20091118
  Transmission Date: 20100525
  Serious: Yes (Hospitalization, Other)
  Sender: FDA-Public Use
  Company Number: US-AMGEN-US375395

PATIENT
  Sex: Female
  Weight: 88.5 kg

DRUGS (1)
  1. NPLATE [Suspect]
     Indication: IDIOPATHIC THROMBOCYTOPENIC PURPURA
     Dates: start: 20090212

REACTIONS (3)
  - DERMATITIS BULLOUS [None]
  - HOSPITALISATION [None]
  - THERAPEUTIC RESPONSE DECREASED [None]
